FAERS Safety Report 15984634 (Version 2)
Quarter: 2019Q1

REPORT INFORMATION
  Report Type: Spontaneous
  Country: US (occurrence: US)
  Receive Date: 20190220
  Receipt Date: 20190306
  Transmission Date: 20190418
  Serious: No
  Sender: FDA-Public Use
  Company Number: US-DUCHESNAY INC.-2062933

PATIENT
  Age: 51 Year
  Sex: Female
  Weight: 54.9 kg

DRUGS (6)
  1. AMITRIPTYLINE (ELAVIL) 10MG TABLET, TAKE 1 TABLET (1MG TOTAL) BY MOUTH [Concomitant]
  2. OSPHENA [Suspect]
     Active Substance: OSPEMIFENE
     Indication: DYSPAREUNIA
     Route: 048
     Dates: start: 20180828, end: 20180918
  3. PREDNISONE (DELTASONE) 10 MG TABLET, 3 TABS PO QD 3 DAYS, 2 TABS PO QD [Concomitant]
  4. AMLODIPINE (NORVASC) 2.5MG TABLET , TAKE 2 TABLETS (5MG TOTAL) BY MOUT [Concomitant]
  5. POTASSIUM CHLORIDE (KLOR-CON) 20MEQ PACKET, TAKE 20 MEQ BY MOUTH [Concomitant]
  6. LEVOTHYROXINE (SYNTHROID, LEVOTHROID) 50MCG TABLET, TAKE 1 TABLET BY M [Concomitant]

REACTIONS (2)
  - Depression [Recovered/Resolved]
  - Crying [Recovered/Resolved]

NARRATIVE: CASE EVENT DATE: 20180829
